FAERS Safety Report 5815471-3 (Version None)
Quarter: 2008Q3

REPORT INFORMATION
  Report Type: 
  Country: None (occurrence: None)
  Receive Date: 20080718
  Receipt Date: 20080708
  Transmission Date: 20090109
  Serious: Yes (Hospitalization)
  Sender: FDA-Public Use
  Company Number: BE-PFIZER INC-2008057053

PATIENT
  Age: 35 Year
  Sex: Male
  Weight: 65 kg

DRUGS (5)
  1. VFEND [Suspect]
     Indication: BRONCHOPULMONARY ASPERGILLOSIS
     Route: 048
     Dates: start: 20071001, end: 20080501
  2. AUGMENTIN '125' [Concomitant]
     Route: 048
  3. N-ACETYLCYSTEINE [Concomitant]
     Route: 048
  4. SERETIDE [Concomitant]
     Route: 055
  5. MEDROL [Concomitant]
     Route: 048
     Dates: start: 20060401, end: 20070801

REACTIONS (1)
  - EJECTION FRACTION DECREASED [None]
